FAERS Safety Report 21515808 (Version 1)
Quarter: 2022Q4

REPORT INFORMATION
  Report Type: Report from Study
  Country: US (occurrence: US)
  Receive Date: 20221027
  Receipt Date: 20221027
  Transmission Date: 20230113
  Serious: Yes (Other)
  Sender: FDA-Public Use
  Company Number: US-TAKEDA-US202011355

PATIENT
  Age: 51 Year
  Sex: Male
  Weight: 68 kg

DRUGS (1)
  1. LANADELUMAB [Suspect]
     Active Substance: LANADELUMAB
     Indication: Immune system disorder
     Dosage: 300 MILLIGRAM, 1X/2WKS
     Route: 058
     Dates: start: 20180910

REACTIONS (4)
  - Renal failure [Unknown]
  - Hereditary angioedema [Recovered/Resolved]
  - Weight increased [Unknown]
  - Product availability issue [Unknown]

NARRATIVE: CASE EVENT DATE: 20200301
